FAERS Safety Report 10315206 (Version 2)
Quarter: 2014Q3

REPORT INFORMATION
  Report Type: Other
  Country: US (occurrence: US)
  Receive Date: 20140719
  Receipt Date: 20140719
  Transmission Date: 20150326
  Serious: No
  Sender: FDA-Public Use
  Company Number: US-GSKPPD-2014GSK005288

PATIENT
  Age: 51 Year
  Sex: Male

DRUGS (12)
  1. ENALAPRIL [Concomitant]
     Active Substance: ENALAPRIL
  2. PREVACID [Concomitant]
     Active Substance: LANSOPRAZOLE
  3. LIMISIL [Concomitant]
  4. ZINC [Concomitant]
     Active Substance: ZINC\ZINC CHLORIDE
  5. NEURONTIN [Concomitant]
     Active Substance: GABAPENTIN
  6. HCTZ [Concomitant]
     Active Substance: HYDROCHLOROTHIAZIDE
  7. BENADRYL [Concomitant]
     Active Substance: DIPHENHYDRAMINE HYDROCHLORIDE
     Dosage: PRN
  8. GARLIC TABLET [Concomitant]
  9. FISH OIL [Concomitant]
     Active Substance: FISH OIL
  10. AVANDAMET [Suspect]
     Active Substance: METFORMIN HYDROCHLORIDE\ROSIGLITAZONE MALEATE
     Indication: DIABETES MELLITUS
     Dosage: 4/500?DATES OF AVANDAMET USE COULD NOT BE CONFIRMED IN RECORDS REVIEWED.
     Route: 048
  11. AVANDIA [Suspect]
     Active Substance: ROSIGLITAZONE MALEATE
     Indication: DIABETES MELLITUS
     Route: 048
  12. GLIPIZIDE. [Concomitant]
     Active Substance: GLIPIZIDE

REACTIONS (2)
  - Hypertension [Recovered/Resolved]
  - Dyslipidaemia [Recovered/Resolved]

NARRATIVE: CASE EVENT DATE: 20050801
